FAERS Safety Report 12487704 (Version 1)
Quarter: 2016Q2

REPORT INFORMATION
  Report Type: Spontaneous
  Country: US (occurrence: US)
  Receive Date: 20160622
  Receipt Date: 20160622
  Transmission Date: 20160815
  Serious: No
  Sender: FDA-Public Use
  Company Number: US-009507513-1606USA002060

PATIENT
  Age: 20 Year
  Sex: Female
  Weight: 87.98 kg

DRUGS (1)
  1. NEXPLANON [Suspect]
     Active Substance: ETONOGESTREL
     Dosage: UNK, FREQUENCY EVERY 3 WEEKS
     Route: 059
     Dates: start: 20160125

REACTIONS (5)
  - Myalgia [Unknown]
  - Headache [Unknown]
  - Hypersensitivity [Unknown]
  - Nausea [Unknown]
  - Back pain [Unknown]

NARRATIVE: CASE EVENT DATE: 2016
